FAERS Safety Report 11497884 (Version 3)
Quarter: 2016Q1

REPORT INFORMATION
  Report Type: Report from Study
  Country: IN (occurrence: IN)
  Receive Date: 20150911
  Receipt Date: 20160113
  Transmission Date: 20160525
  Serious: Yes (Death, Hospitalization)
  Sender: FDA-Public Use
  Company Number: PHHO2015IN001731

PATIENT
  Age: 49 Year
  Sex: Female

DRUGS (14)
  1. GABAPENTIN. [Concomitant]
     Active Substance: GABAPENTIN
     Indication: NEUROPATHY PERIPHERAL
     Dosage: 100 MG, QD
     Route: 048
     Dates: start: 20150801
  2. CALCIUM [Concomitant]
     Active Substance: CALCIUM
     Indication: HYPOCALCAEMIA
     Dosage: 500 MG, BID
     Route: 048
     Dates: start: 20131230
  3. MYFORTIC [Suspect]
     Active Substance: MYCOPHENOLATE SODIUM
     Dosage: 360 MG, BID
     Route: 048
     Dates: start: 20150523, end: 20150605
  4. NO TREATMENT RECEIVED [Suspect]
     Active Substance: UNSPECIFIED INGREDIENT
     Indication: RENAL TRANSPLANT
     Dosage: NO TREATMENT
     Route: 065
  5. NEUROBION FORTE [Concomitant]
     Active Substance: CYANOCOBALAMIN\PYRIDOXINE HYDROCHLORIDE\THIAMINE DISULFIDE
     Indication: NEUROPATHY PERIPHERAL
     Dosage: 1000 UG, QD
     Route: 042
     Dates: start: 20150730
  6. ALFACALCIDOL [Concomitant]
     Active Substance: ALFACALCIDOL
     Indication: HYPOCALCAEMIA
     Dosage: 0.25 UG, BID
     Route: 048
     Dates: start: 20131230
  7. DEFLAZACORT [Suspect]
     Active Substance: DEFLAZACORT
     Indication: RENAL TRANSPLANT
     Dosage: 6 MG, QD (1 TABLET)
     Route: 048
     Dates: start: 20141213, end: 20150720
  8. MYFORTIC [Suspect]
     Active Substance: MYCOPHENOLATE SODIUM
     Dosage: 360 MG, QW2 (OD)
     Route: 048
     Dates: start: 20150711, end: 20150826
  9. TACROLIMUS. [Suspect]
     Active Substance: TACROLIMUS
     Indication: RENAL TRANSPLANT
     Dosage: 0.5 MG, BID
     Route: 048
     Dates: start: 20141213, end: 20150826
  10. AMLODIPINE [Concomitant]
     Active Substance: AMLODIPINE BESYLATE
     Indication: HYPERTENSION
     Dosage: 5 MG, BID
     Route: 048
     Dates: start: 20131230
  11. MYFORTIC [Suspect]
     Active Substance: MYCOPHENOLATE SODIUM
     Indication: RENAL TRANSPLANT
     Dosage: 360 MG, BID
     Route: 048
     Dates: start: 20141213, end: 20150425
  12. MYFORTIC [Suspect]
     Active Substance: MYCOPHENOLATE SODIUM
     Dosage: 360 MG, QW2 (OD)
     Route: 048
     Dates: start: 20150611, end: 20150623
  13. METOPROLOL. [Concomitant]
     Active Substance: METOPROLOL
     Indication: HYPERTENSION
     Dosage: 2.5 MG, BID
     Route: 048
     Dates: start: 20131230
  14. DEFLAZACORT [Suspect]
     Active Substance: DEFLAZACORT
     Dosage: 6 MG, QD (1 TABLET)
     Route: 048
     Dates: start: 20150803, end: 20150826

REACTIONS (9)
  - Abdominal pain [Fatal]
  - Disseminated tuberculosis [Fatal]
  - Pyrexia [Recovered/Resolved]
  - Post procedural persistent drain fluid [Recovered/Resolved]
  - Perinephric collection [Recovering/Resolving]
  - Lymphocele [Recovered/Resolved]
  - Fungal sepsis [Fatal]
  - Pancreatitis acute [Recovered/Resolved]
  - Abdominal pain [Recovered/Resolved]

NARRATIVE: CASE EVENT DATE: 20141223
